FAERS Safety Report 9949674 (Version 1)
Quarter: 2014Q1

REPORT INFORMATION
  Report Type: Report from Study
  Country: US (occurrence: US)
  Receive Date: 20140304
  Receipt Date: 20140304
  Transmission Date: 20141002
  Serious: No
  Sender: FDA-Public Use
  Company Number: US-ABBVIE-13P-163-1065536-00

PATIENT
  Age: 83 Year
  Sex: Female

DRUGS (10)
  1. HUMIRA [Suspect]
     Indication: COLITIS ULCERATIVE
     Dates: start: 20130222, end: 20130222
  2. HUMIRA [Suspect]
     Dates: start: 20130308, end: 20130308
  3. ATENOLOL [Concomitant]
     Indication: HYPERTENSION
  4. METFORMIN [Concomitant]
     Indication: DIABETES MELLITUS
  5. ALLOPURINOL [Concomitant]
     Indication: GOUT
  6. HYOSCYAMINE [Concomitant]
     Indication: FLATULENCE
  7. CENTREX MULTIVITAMIN [Concomitant]
     Indication: VITAMIN SUPPLEMENTATION
  8. CALCIUM [Concomitant]
     Indication: MINERAL SUPPLEMENTATION
  9. IRON [Concomitant]
     Indication: MINERAL SUPPLEMENTATION
  10. VITAMIN C [Concomitant]
     Indication: VITAMIN SUPPLEMENTATION

REACTIONS (2)
  - Rash [Not Recovered/Not Resolved]
  - Pruritus [Not Recovered/Not Resolved]
